FAERS Safety Report 9133463 (Version 5)
Quarter: 2014Q1

REPORT INFORMATION
  Report Type: Spontaneous
  Country: US (occurrence: US)
  Receive Date: 20130301
  Receipt Date: 20140106
  Transmission Date: 20141002
  Serious: Yes (Hospitalization, Disabling, Other)
  Sender: FDA-Public Use
  Company Number: US-009507513-1302USA013483

PATIENT
  Sex: Female
  Weight: 63.49 kg

DRUGS (1)
  1. NUVARING [Suspect]
     Indication: CONTRACEPTION
     Dosage: UNK
     Route: 067
     Dates: start: 20100103, end: 20120314

REACTIONS (16)
  - Hypercoagulation [Unknown]
  - Pulmonary embolism [Recovering/Resolving]
  - Pulmonary embolism [Not Recovered/Not Resolved]
  - Pulmonary embolism [Unknown]
  - Pulmonary infarction [Not Recovered/Not Resolved]
  - Pulmonary infarction [Not Recovered/Not Resolved]
  - Deep vein thrombosis [Recovered/Resolved]
  - Deep vein thrombosis [Unknown]
  - Thrombophlebitis [Not Recovered/Not Resolved]
  - Thrombophlebitis [Not Recovered/Not Resolved]
  - Thrombosis [Unknown]
  - Headache [Unknown]
  - Wisdom teeth removal [Unknown]
  - Bunion operation [Unknown]
  - Bunion operation [Unknown]
  - Bunion operation [Unknown]
